FAERS Safety Report 4943828-1 (Version None)
Quarter: 2006Q1

REPORT INFORMATION
  Report Type: 
  Country: None (occurrence: None)
  Receive Date: 20060310
  Receipt Date: 20060301
  Transmission Date: 20060701
  Serious: Yes (Other)
  Sender: FDA-Public Use
  Company Number: 2006030610

PATIENT
  Sex: Female

DRUGS (1)
  1. NICORETTE [Suspect]
     Indication: SMOKING CESSATION THERAPY
     Dosage: 15 MG / 16H, TRANSDERMAL
     Route: 062

REACTIONS (3)
  - FEELING ABNORMAL [None]
  - MALAISE [None]
  - PARAESTHESIA [None]
